FAERS Safety Report 14560035 (Version 3)
Quarter: 2018Q1

REPORT INFORMATION
  Report Type: Spontaneous
  Country: US (occurrence: US)
  Receive Date: 20180221
  Receipt Date: 20180323
  Transmission Date: 20180509
  Serious: No
  Sender: FDA-Public Use
  Company Number: US-JNJFOC-20180209257

PATIENT
  Age: 74 Year
  Sex: Male
  Weight: 90.72 kg

DRUGS (5)
  1. IMURAN [Concomitant]
     Active Substance: AZATHIOPRINE
     Route: 065
  2. SIMPONI [Suspect]
     Active Substance: GOLIMUMAB
     Indication: CROHN^S DISEASE
     Route: 058
  3. PROSCAR [Concomitant]
     Active Substance: FINASTERIDE
     Route: 065
  4. CARVEDILOL. [Concomitant]
     Active Substance: CARVEDILOL
     Indication: CARDIAC DISORDER
     Route: 065
  5. FLOMAX [Concomitant]
     Active Substance: TAMSULOSIN HYDROCHLORIDE
     Route: 065

REACTIONS (5)
  - Device malfunction [Unknown]
  - Accidental exposure to product [Unknown]
  - Drug dose omission [Unknown]
  - Off label use [Unknown]
  - Product use in unapproved indication [Unknown]

NARRATIVE: CASE EVENT DATE: 20180203
